FAERS Safety Report 17600905 (Version 1)
Quarter: 2020Q1

REPORT INFORMATION
  Report Type: Report from Study
  Country: IT (occurrence: IT)
  Receive Date: 20200330
  Receipt Date: 20200330
  Transmission Date: 20200409
  Serious: Yes (Other)
  Sender: FDA-Public Use
  Company Number: IT-TEVA-2020-IT-1212937

PATIENT
  Age: 67 Year
  Sex: Female

DRUGS (7)
  1. EDOXABAN [Concomitant]
     Active Substance: EDOXABAN TOSYLATE
  2. PANTOPRAZOLE [Concomitant]
     Active Substance: PANTOPRAZOLE
  3. OLPREZIDE 20 MG/12,5 MG COMPRESSE RIVESTITE CON FILM [Suspect]
     Active Substance: HYDROCHLOROTHIAZIDE\OLMESARTAN MEDOXOMIL
     Indication: HYPERTENSION
     Dosage: 1 DF, 20 MG / 12.5 MG
     Route: 048
     Dates: start: 20191217
  4. ALENDRONATE SODIUM. [Concomitant]
     Active Substance: ALENDRONATE SODIUM
  5. LETRIX [Concomitant]
  6. FREQUIL 200 MG CAPSULE RIGIDE A RILASCIO PROLUNGATO [Concomitant]
  7. BISOPROLOL HEMIFUMARATE [Suspect]
     Active Substance: BISOPROLOL FUMARATE
     Indication: HYPERTENSION
     Dosage: 1.25 MG
     Route: 048
     Dates: start: 20191217

REACTIONS (3)
  - Presyncope [Unknown]
  - Malaise [Unknown]
  - Asthenia [Unknown]

NARRATIVE: CASE EVENT DATE: 20200104
